FAERS Safety Report 13003115 (Version 1)
Quarter: 2016Q4

REPORT INFORMATION
  Report Type: Spontaneous
  Country: MA (occurrence: MA)
  Receive Date: 20161206
  Receipt Date: 20161206
  Transmission Date: 20170207
  Serious: Yes (Other)
  Sender: FDA-Public Use
  Company Number: MA-MYLANLABS-2016M1052652

PATIENT

DRUGS (2)
  1. DEXAMETHASONE. [Suspect]
     Active Substance: DEXAMETHASONE
     Indication: ANALGESIC THERAPY
     Dosage: SPLIT-MIXED INJECTION OF 4 ML BUPIVACAINE 0.125% AND 1ML (OR 4MG) DEXAMETHASONE, 5 ML TOTAL VOLUME
     Route: 050
  2. BUPIVACAINE. [Concomitant]
     Active Substance: BUPIVACAINE
     Indication: ANALGESIC THERAPY
     Dosage: SPLIT-MIXED INJECTION OF 4 ML BUPIVACAINE 0.125% AND 1ML (OR 4MG) DEXAMETHASONE, 5 ML TOTAL VOLUME
     Route: 050

REACTIONS (1)
  - Neuromuscular block prolonged [Recovered/Resolved]
